FAERS Safety Report 8972214 (Version 1)
Quarter: 2012Q4

REPORT INFORMATION
  Report Type: 
  Country: US (occurrence: US)
  Receive Date: 20121219
  Receipt Date: 20121219
  Transmission Date: 20130627
  Serious: No
  Sender: FDA-Public Use
  Company Number: US-MYLANLABS-2012S1013013

PATIENT
  Age: 50 Year
  Sex: Female

DRUGS (4)
  1. LEVETIRACETAM [Suspect]
     Route: 048
     Dates: start: 20120624, end: 201206
  2. EFFEXOR [Concomitant]
     Route: 048
  3. PRILOSEC [Concomitant]
     Route: 048
  4. AROMASIN [Concomitant]
     Route: 048

REACTIONS (6)
  - Dyspnoea [Recovered/Resolved]
  - Chest pain [Recovered/Resolved]
  - Vision blurred [Recovered/Resolved]
  - Dizziness [Recovered/Resolved]
  - Asthenia [Recovered/Resolved]
  - Muscle spasms [Recovered/Resolved]
